FAERS Safety Report 25985062 (Version 1)
Quarter: 2025Q4

REPORT INFORMATION
  Report Type: Spontaneous
  Country: CH (occurrence: CH)
  Receive Date: 20251031
  Receipt Date: 20251031
  Transmission Date: 20260118
  Serious: Yes (Hospitalization)
  Sender: Alora Pharma
  Company Number: CH-AVION PHARMACEUTICALS-2025ALO02570

PATIENT
  Age: 62 Year
  Sex: Female

DRUGS (2)
  1. PONSTEL [Suspect]
     Active Substance: MEFENAMIC ACID
     Indication: Osteoarthritis
     Dosage: 0.5-1.0 G DAILY
     Route: 065
  2. PONSTEL [Suspect]
     Active Substance: MEFENAMIC ACID
     Dosage: DOUBLED
     Route: 065

REACTIONS (5)
  - Linear IgA disease [Recovered/Resolved]
  - Dizziness [Recovered/Resolved]
  - Fatigue [Recovered/Resolved]
  - Diarrhoea [Recovered/Resolved]
  - Steatorrhoea [Recovered/Resolved]
